FAERS Safety Report 5510771-9 (Version None)
Quarter: 2007Q4

REPORT INFORMATION
  Report Type: 
  Country: None (occurrence: None)
  Receive Date: 20071108
  Receipt Date: 20071102
  Transmission Date: 20080405
  Serious: Yes (Life-Threatening)
  Sender: FDA-Public Use
  Company Number: B0493732A

PATIENT
  Age: 87 Year
  Sex: Female
  Weight: 49 kg

DRUGS (10)
  1. ARIXTRA [Suspect]
     Indication: THROMBOSIS PROPHYLAXIS
     Dosage: 2.5MG PER DAY
     Route: 058
     Dates: start: 20071004, end: 20071006
  2. CELECOXIB [Suspect]
     Indication: PAIN
     Dosage: 100MG TWICE PER DAY
     Route: 048
     Dates: start: 20070926, end: 20071005
  3. MICARDIS [Concomitant]
     Indication: HYPERTENSION
     Dosage: 40MG PER DAY
     Route: 048
     Dates: end: 20071005
  4. UNKNOWN DRUG [Concomitant]
     Indication: HYPERTENSION
     Dosage: 50MG PER DAY
     Route: 048
     Dates: end: 20071005
  5. ALLOPURINOL [Concomitant]
     Dosage: 100MG PER DAY
     Route: 048
     Dates: end: 20071005
  6. OSTEN [Concomitant]
     Indication: OSTEOPOROSIS
     Dosage: 200MG PER DAY
     Route: 048
     Dates: end: 20071005
  7. BUP-4 [Concomitant]
     Indication: POLLAKIURIA
     Dosage: 10MG PER DAY
     Route: 048
     Dates: end: 20071005
  8. GLYSENNID [Concomitant]
     Indication: CONSTIPATION
     Dosage: 12MG PER DAY
     Route: 048
     Dates: end: 20071005
  9. GASLON N [Concomitant]
     Indication: GASTRITIS
     Dosage: 2MG TWICE PER DAY
     Route: 048
     Dates: start: 20070926, end: 20071005
  10. NSAIDS [Concomitant]

REACTIONS (2)
  - GASTROINTESTINAL HAEMORRHAGE [None]
  - STRESS [None]
